FAERS Safety Report 9216176 (Version 2)
Quarter: 2013Q2

REPORT INFORMATION
  Report Type: Spontaneous
  Country: GB (occurrence: None)
  Receive Date: 20130404
  Receipt Date: 20130412
  Transmission Date: 20140414
  Serious: Yes (Hospitalization, Other)
  Sender: FDA-Public Use
  Company Number: KAD201302-000271

PATIENT
  Age: 52 Year
  Sex: Male

DRUGS (4)
  1. RIBAVIRIN [Suspect]
     Indication: HEPATITIS C
     Dates: start: 201210
  2. INCIVO [Suspect]
     Indication: HEPATITIS C
     Route: 048
     Dates: start: 201210
  3. PEGASYS [Suspect]
     Indication: HEPATITIS C
     Dates: start: 201210
  4. MYCOPHENOLATE MOFETIL (MYCOPHENOLIC ACID) [Concomitant]

REACTIONS (2)
  - Anaemia [None]
  - Otitis media [None]
